FAERS Safety Report 22261260 (Version 1)
Quarter: 2023Q2

REPORT INFORMATION
  Report Type: Spontaneous
  Country: US (occurrence: None)
  Receive Date: 20230427
  Receipt Date: 20230427
  Transmission Date: 20230722
  Serious: No
  Sender: FDA-Public Use
  Company Number: 2023A067554

PATIENT
  Sex: Male
  Weight: 84.6 kg

DRUGS (16)
  1. CALQUENCE [Suspect]
     Active Substance: ACALABRUTINIB
     Indication: Chronic lymphocytic leukaemia
     Route: 048
  2. ACETAMINOPHEN\HYDROCODONE BITARTRATE [Concomitant]
     Active Substance: ACETAMINOPHEN\HYDROCODONE BITARTRATE
  3. ACYCLOVIR [Concomitant]
     Active Substance: ACYCLOVIR
  4. TUMS [Concomitant]
     Active Substance: CALCIUM CARBONATE
  5. AMOXICILLIN [Concomitant]
     Active Substance: AMOXICILLIN
  6. CEPHALEXIN [Concomitant]
     Active Substance: CEPHALEXIN
  7. DIPHENHYDRAMINE [Concomitant]
     Active Substance: DIPHENHYDRAMINE
  8. DOXYCYCLINE [Concomitant]
     Active Substance: DOXYCYCLINE
  9. LIDOCAINE [Concomitant]
     Active Substance: LIDOCAINE
  10. LORAZEPAM [Concomitant]
     Active Substance: LORAZEPAM
  11. ONDANSETRON [Concomitant]
     Active Substance: ONDANSETRON
  12. PREDNISONE [Concomitant]
     Active Substance: PREDNISONE
  13. PROMETHAZINE [Concomitant]
     Active Substance: PROMETHAZINE HYDROCHLORIDE
  14. SILDENAFIL [Concomitant]
     Active Substance: SILDENAFIL
  15. TAMSULOSIN [Concomitant]
     Active Substance: TAMSULOSIN
  16. TRIAMCINOLONE ACETONIDE [Concomitant]
     Active Substance: TRIAMCINOLONE ACETONIDE

REACTIONS (1)
  - Contusion [Recovering/Resolving]
